FAERS Safety Report 25915698 (Version 1)
Quarter: 2025Q4

REPORT INFORMATION
  Report Type: Spontaneous
  Country: SG (occurrence: SG)
  Receive Date: 20251013
  Receipt Date: 20251013
  Transmission Date: 20260117
  Serious: Yes (Other)
  Sender: MERCK SHARP & DOHME LLC
  Company Number: SG-009507513-2335902

PATIENT
  Age: 84 Year
  Sex: Female

DRUGS (1)
  1. PEMBROLIZUMAB [Suspect]
     Active Substance: PEMBROLIZUMAB
     Indication: Colorectal cancer

REACTIONS (3)
  - Acute kidney injury [Unknown]
  - Tubulointerstitial nephritis [Unknown]
  - Dyspepsia [Unknown]
